FAERS Safety Report 6971736-3 (Version None)
Quarter: 2010Q3

REPORT INFORMATION
  Report Type: 
  Country: None (occurrence: None)
  Receive Date: 20100908
  Receipt Date: 20100827
  Transmission Date: 20110219
  Serious: Yes (Death)
  Sender: FDA-Public Use
  Company Number: DK-WATSON-2010-11558

PATIENT
  Sex: Male

DRUGS (14)
  1. TRELSTAR [Suspect]
     Indication: PROSTATE CANCER
     Dosage: 22.5 MG, SINGLE CYCLE
     Route: 030
     Dates: start: 20100519, end: 20100519
  2. METOPROLOL SUCCINATE [Suspect]
     Indication: HYPERTENSION
     Dosage: 50 MG, 1 IN 1 D
     Route: 048
     Dates: start: 20050729
  3. SIMVASTATIN [Suspect]
     Indication: HYPERCHOLESTEROLAEMIA
     Dosage: 40 MG, 1 IN 1 D
     Route: 048
     Dates: start: 20050729
  4. MAGNYL                             /00002701/ [Suspect]
     Indication: PROPHYLAXIS
     Dosage: 75 MG, 1 IN 1 D
     Route: 048
     Dates: start: 20050729
  5. SPIRIVA [Suspect]
     Indication: CHRONIC OBSTRUCTIVE PULMONARY DISEASE
     Dosage: 18 UG, 1 IN 1 D
     Route: 055
     Dates: start: 20090611
  6. BRICANYL [Suspect]
     Indication: CHRONIC OBSTRUCTIVE PULMONARY DISEASE
     Dosage: 0.5 MG, AS REQUIRED
     Route: 055
     Dates: start: 20100206
  7. SYMBICORT [Suspect]
     Indication: CHRONIC OBSTRUCTIVE PULMONARY DISEASE
     Dosage: 9 + 320 UG (MG,2 IN 1 D)
     Route: 055
     Dates: start: 20090722
  8. AMLODIPINE BESYLATE [Suspect]
     Indication: HYPERTENSION
     Dosage: 5 MG, 1 IN 1 D
     Route: 048
     Dates: start: 20091216
  9. ERGOCALCIFEROL [Suspect]
     Indication: OSTEOPOROSIS
     Dosage: 400 MG + 19 UG (NOT REPORTED, 1 IN 1 D)
     Route: 048
     Dates: start: 20100226
  10. SOLU-MEDROL [Suspect]
     Indication: OSTEOPOROSIS
     Dosage: 70 MG, 1 IN 7 D
     Route: 048
     Dates: start: 20100226
  11. ALENDRONATE SODIUM [Suspect]
     Indication: OSTEOPOROSIS
     Dosage: 70 MG, 1 IN 7 D
     Route: 048
     Dates: start: 20100226
  12. MAGNESIUM HYDROXIDE TAB [Suspect]
     Indication: CONSTIPATION
     Dosage: 500 MG, 1 IN 1 D
     Route: 048
     Dates: start: 20100226
  13. DUOVENT [Suspect]
     Indication: CHRONIC OBSTRUCTIVE PULMONARY DISEASE
     Dosage: 4 ML, AS REQUIRED
     Route: 055
     Dates: start: 20100226
  14. CODEINE SUL TAB [Suspect]
     Indication: PAIN
     Dosage: 1 G, AS REQUIRED
     Route: 048
     Dates: start: 20100226

REACTIONS (3)
  - HEPATIC FAILURE [None]
  - RENAL FAILURE [None]
  - SEPSIS [None]
